FAERS Safety Report 4300553-8 (Version None)
Quarter: 2004Q1

REPORT INFORMATION
  Report Type: 
  Country: None (occurrence: None)
  Receive Date: 20040217
  Receipt Date: 20040203
  Transmission Date: 20041129
  Serious: Yes (Other)
  Sender: FDA-Public Use
  Company Number: 2004008291

PATIENT
  Age: 39 Year
  Sex: Female

DRUGS (10)
  1. LIPITOR [Suspect]
     Indication: ILL-DEFINED DISORDER
     Dosage: 40 MG DAILY
  2. LOPID [Suspect]
     Indication: ILL-DEFINED DISORDER
     Dosage: 1.2 GRAM DAILY
  3. CONTRAST MEDIA [Suspect]
     Indication: ILL-DEFINED DISORDER
  4. RANITIDINE [Concomitant]
  5. METFORMIN HCL [Concomitant]
  6. DIGOXIN [Concomitant]
  7. FUROSEMIDE [Concomitant]
  8. FUSIDIC ACID [Concomitant]
  9. PERINDOPRIL (PERINDOPRIL) [Concomitant]
  10. ACETYLSALICYLIC ACID SRT [Concomitant]

REACTIONS (7)
  - BLOOD CREATINE PHOSPHOKINASE INCREASED [None]
  - HAEMODIALYSIS [None]
  - HYPERHIDROSIS [None]
  - HYPERKALAEMIA [None]
  - HYPOXIA [None]
  - RENAL FAILURE ACUTE [None]
  - RHABDOMYOLYSIS [None]
